FAERS Safety Report 5145235-8 (Version None)
Quarter: 2006Q4

REPORT INFORMATION
  Report Type: 
  Country: None (occurrence: None)
  Receive Date: 20060914
  Receipt Date: 20060714
  Transmission Date: 20070319
  Serious: Yes (Other)
  Sender: FDA-Public Use
  Company Number: 0206026

PATIENT
  Age: 70 Year
  Sex: Female

DRUGS (1)
  1. DEPODUR [Suspect]
     Indication: PROCEDURAL PAIN

REACTIONS (1)
  - RESPIRATORY DEPRESSION [None]
